FAERS Safety Report 8425677-5 (Version None)
Quarter: 2012Q2

REPORT INFORMATION
  Report Type: 
  Country: None (occurrence: None)
  Receive Date: 20120611
  Receipt Date: 20120606
  Transmission Date: 20120825
  Serious: Yes (Disabling)
  Sender: FDA-Public Use
  Company Number: PHHY2012CN048927

PATIENT
  Age: 11 Year
  Sex: Male

DRUGS (4)
  1. TRILEPTAL [Suspect]
     Dosage: 0.45 G, BID
     Route: 048
     Dates: end: 20120529
  2. LAMOTRIGINE [Concomitant]
     Indication: EPILEPSY
  3. TRILEPTAL [Suspect]
     Indication: EPILEPSY
     Route: 048
     Dates: start: 20111124
  4. VALPROATE SODIUM [Concomitant]
     Indication: EPILEPSY

REACTIONS (3)
  - LEUKODYSTROPHY [None]
  - TREMOR [None]
  - MYOCLONUS [None]
